FAERS Safety Report 9752943 (Version 3)
Quarter: 2014Q1

REPORT INFORMATION
  Report Type: Spontaneous
  Country: US (occurrence: US)
  Receive Date: 20131213
  Receipt Date: 20140305
  Transmission Date: 20141002
  Serious: No
  Sender: FDA-Public Use
  Company Number: US-TEVA-450446USA

PATIENT
  Sex: Male

DRUGS (1)
  1. PROAIR HFA [Suspect]
     Dosage: 2 INHALATIONS EVERY 4-6 HOURS AS NEEDED
     Route: 055

REACTIONS (2)
  - Drug ineffective [Recovered/Resolved]
  - Device malfunction [Unknown]
